FAERS Safety Report 5655490-3 (Version None)
Quarter: 2008Q1

REPORT INFORMATION
  Report Type: 
  Country: None (occurrence: None)
  Receive Date: 20080307
  Receipt Date: 20080227
  Transmission Date: 20080703
  Serious: Yes (Hospitalization)
  Sender: FDA-Public Use
  Company Number: US-ELI_LILLY_AND_COMPANY-US200802006602

PATIENT
  Sex: Female
  Weight: 89.342 kg

DRUGS (9)
  1. BYETTA [Suspect]
     Dosage: 5 UG, 2/D
     Route: 058
     Dates: start: 20070401, end: 20070801
  2. BYETTA [Suspect]
     Dosage: 5 UG, DAILY (1/D)
     Route: 058
     Dates: start: 20070801, end: 20080101
  3. BYETTA [Suspect]
     Dosage: 5 UG, 2/D
     Route: 058
     Dates: start: 20080101
  4. ANTI-DIABETICS [Concomitant]
     Indication: DIABETES MELLITUS
     Route: 048
  5. ANTIHYPERTENSIVES [Concomitant]
     Indication: HYPERTENSION
     Route: 048
     Dates: start: 20070501
  6. CRESTOR [Concomitant]
  7. HYPNOTICS AND SEDATIVES [Concomitant]
     Indication: SLEEP DISORDER
     Route: 048
  8. EFFEXOR [Concomitant]
     Indication: DEPRESSION
  9. LYRICA [Concomitant]

REACTIONS (6)
  - ARTHRALGIA [None]
  - ARTHRITIS [None]
  - PULMONARY EMBOLISM [None]
  - SKIN WRINKLING [None]
  - VERTIGO [None]
  - WEIGHT FLUCTUATION [None]
